FAERS Safety Report 4724487-X (Version None)
Quarter: 2005Q3

REPORT INFORMATION
  Report Type: 
  Country: None (occurrence: None)
  Receive Date: 20050721
  Receipt Date: 20050713
  Transmission Date: 20060218
  Serious: Yes (Death, Hospitalization, Disabling, Other)
  Sender: FDA-Public Use
  Company Number: 2005-05-0445

PATIENT
  Age: 48 Year
  Sex: Female
  Weight: 56 kg

DRUGS (6)
  1. TEMODAL [Suspect]
     Indication: MALIGNANT MELANOMA
     Dosage: 120 MG; ORAL
     Route: 048
     Dates: start: 20050301, end: 20050401
  2. PREDNISOLONE [Suspect]
     Dosage: 3 QD;
  3. RADIATION THERAPY [Concomitant]
  4. OMEPRAZOLE [Concomitant]
  5. DOLIPRANE [Concomitant]
  6. ESTRADIOL [Concomitant]

REACTIONS (12)
  - ABDOMINAL PAIN UPPER [None]
  - ALANINE AMINOTRANSFERASE INCREASED [None]
  - ANOREXIA [None]
  - ASPARTATE AMINOTRANSFERASE INCREASED [None]
  - GAMMA-GLUTAMYLTRANSFERASE INCREASED [None]
  - HOT FLUSH [None]
  - METASTASES TO BREAST [None]
  - METASTASES TO CENTRAL NERVOUS SYSTEM [None]
  - METASTASES TO LUNG [None]
  - NAUSEA [None]
  - RASH [None]
  - VOMITING [None]
